FAERS Safety Report 15374891 (Version 2)
Quarter: 2018Q4

REPORT INFORMATION
  Report Type: Spontaneous
  Country: AR (occurrence: AR)
  Receive Date: 20180912
  Receipt Date: 20181011
  Transmission Date: 20190204
  Serious: Yes (Other)
  Sender: FDA-Public Use
  Company Number: PHHY2018AR089493

PATIENT
  Sex: Male

DRUGS (2)
  1. FLUTICASONE. [Concomitant]
     Active Substance: FLUTICASONE
     Indication: PRODUCT USED FOR UNKNOWN INDICATION
     Dosage: UNK
     Route: 065
  2. ILARIS [Suspect]
     Active Substance: CANAKINUMAB
     Indication: MEVALONATE KINASE DEFICIENCY
     Dosage: 100 MG/DOSE (4 MG/KG/DOSE)
     Route: 065
     Dates: start: 20180629

REACTIONS (4)
  - Pain in extremity [Unknown]
  - Muscle rigidity [Unknown]
  - Respiratory tract infection [Recovered/Resolved]
  - Asthenia [Unknown]
